FAERS Safety Report 18820781 (Version 2)
Quarter: 2021Q1

REPORT INFORMATION
  Report Type: Spontaneous
  Country: IN (occurrence: IN)
  Receive Date: 20210202
  Receipt Date: 20210226
  Transmission Date: 20210419
  Serious: No
  Sender: FDA-Public Use
  Company Number: IN-LUPIN PHARMACEUTICALS INC.-2021-01036

PATIENT
  Age: 28 Year
  Sex: Female

DRUGS (7)
  1. THIOPENTONE [THIOPENTAL SODIUM] [Suspect]
     Active Substance: THIOPENTAL SODIUM
     Indication: INDUCTION OF ANAESTHESIA
     Dosage: 200 MILLIGRAM
     Route: 042
  2. METOCLOPRAMIDE. [Suspect]
     Active Substance: METOCLOPRAMIDE
     Indication: PRODUCT USED FOR UNKNOWN INDICATION
     Dosage: 10 MILLIGRAM
     Route: 042
  3. DINOPROSTONE. [Suspect]
     Active Substance: DINOPROSTONE
     Indication: LABOUR INDUCTION
     Dosage: UNK
     Route: 065
  4. RANITIDINE. [Suspect]
     Active Substance: RANITIDINE
     Indication: PRODUCT USED FOR UNKNOWN INDICATION
     Dosage: 50 MILLIGRAM
     Route: 065
  5. SALMETEROL [Suspect]
     Active Substance: SALMETEROL
     Indication: ASTHMA
     Dosage: UNK
  6. SUCCINYLCHOLIN [Suspect]
     Active Substance: SUCCINYLCHOLINE CHLORIDE
     Indication: MUSCLE RELAXANT THERAPY
     Dosage: 75 MILLIGRAM
     Route: 042
  7. NITROUS OXIDE;OXYGEN [Suspect]
     Active Substance: NITROUS OXIDE\OXYGEN
     Indication: MAINTENANCE OF ANAESTHESIA
     Dosage: RECEIVED  THROUGH A PROSEAL LMA
     Route: 065

REACTIONS (1)
  - Maternal exposure during pregnancy [Unknown]
